FAERS Safety Report 4502820-1 (Version None)
Quarter: 2004Q4

REPORT INFORMATION
  Report Type: 
  Country: None (occurrence: None)
  Receive Date: 20041112
  Receipt Date: 20041027
  Transmission Date: 20050328
  Serious: No
  Sender: FDA-Public Use
  Company Number: 2004UW22495

PATIENT
  Age: 46 Year
  Sex: Male

DRUGS (1)
  1. ELAVIL [Suspect]
     Dosage: 200 MG DAILY PO
     Route: 048

REACTIONS (7)
  - AGGRESSION [None]
  - DRUG WITHDRAWAL SYNDROME [None]
  - HYPOMANIA [None]
  - LEGAL PROBLEM [None]
  - MANIA [None]
  - NERVOUS SYSTEM DISORDER [None]
  - PSYCHOTIC DISORDER [None]
